FAERS Safety Report 25080381 (Version 1)
Quarter: 2025Q1

REPORT INFORMATION
  Report Type: Report from Study
  Country: US (occurrence: US)
  Receive Date: 20250315
  Receipt Date: 20250315
  Transmission Date: 20250408
  Serious: No
  Sender: SANDOZ
  Company Number: US-SANDOZ-SDZ2024US015311

PATIENT
  Sex: Female

DRUGS (2)
  1. OMNITROPE [Suspect]
     Active Substance: SOMATROPIN
     Indication: Hypopituitarism
     Dosage: 1.1 MG, QD (1.1 MG 2 DOSE EVERY N/A N/A)
     Route: 058
     Dates: start: 20230823
  2. OMNITROPE [Suspect]
     Active Substance: SOMATROPIN
     Indication: Hypopituitarism
     Dosage: 1.1 MG, QD (1.1 MG 2 DOSE EVERY N/A N/A)
     Route: 058
     Dates: start: 20230823

REACTIONS (2)
  - Drug dose omission by device [Unknown]
  - Device breakage [Unknown]
